FAERS Safety Report 9223215 (Version 2)
Quarter: 2013Q2

REPORT INFORMATION
  Report Type: Spontaneous
  Country: US (occurrence: US)
  Receive Date: 20130410
  Receipt Date: 20130418
  Transmission Date: 20140414
  Serious: Yes (Death)
  Sender: FDA-Public Use
  Company Number: US-CELGENEUS-163-POMAL-13041155

PATIENT
  Age: 62 Year
  Sex: Female

DRUGS (26)
  1. POMALYST [Suspect]
     Indication: PLASMA CELL MYELOMA
     Dosage: 4 MILLIGRAM
     Route: 048
     Dates: start: 20130228
  2. OMEPRAZOLE [Concomitant]
     Indication: PRODUCT USED FOR UNKNOWN INDICATION
     Dosage: 40 MILLIGRAM
     Route: 048
     Dates: start: 20111219
  3. IPRATROPIUM-ALBUTEROL [Concomitant]
     Indication: PRODUCT USED FOR UNKNOWN INDICATION
     Dosage: 1 UNIT
     Route: 055
     Dates: start: 20130201
  4. ACYCLOVIR [Concomitant]
     Indication: PRODUCT USED FOR UNKNOWN INDICATION
     Dosage: 1600 MILLIGRAM
     Route: 048
     Dates: start: 20130205
  5. FLUCONAZOLE [Concomitant]
     Indication: PRODUCT USED FOR UNKNOWN INDICATION
     Dosage: 800 MILLIGRAM
     Route: 048
     Dates: start: 20130207
  6. FLUCONAZOLE [Concomitant]
     Dosage: 100 MILLIGRAM
     Route: 048
     Dates: start: 20130304
  7. NYSTATIN [Concomitant]
     Indication: PRODUCT USED FOR UNKNOWN INDICATION
     Dosage: 20 MILLILITER
     Dates: start: 20130207
  8. OXYCODONE [Concomitant]
     Indication: PAIN
     Dosage: 1-2
     Route: 048
     Dates: start: 20120103
  9. OXYCODONE [Concomitant]
     Dosage: 1-2
     Route: 048
     Dates: start: 20120320
  10. OXYCODONE [Concomitant]
     Dosage: 60 MILLIGRAM
     Route: 048
     Dates: start: 20121109
  11. OXYCODONE [Concomitant]
     Dosage: 60 MILLIGRAM
     Route: 048
     Dates: start: 20130208
  12. ALBUTEROL SULFATE [Concomitant]
     Indication: PRODUCT USED FOR UNKNOWN INDICATION
     Dosage: 4
     Route: 055
     Dates: start: 20130208
  13. ALLOPURINOL [Concomitant]
     Indication: PRODUCT USED FOR UNKNOWN INDICATION
     Dosage: 300 MILLIGRAM
     Route: 048
     Dates: start: 20130214
  14. DOCUSATE SODIUM [Concomitant]
     Indication: PRODUCT USED FOR UNKNOWN INDICATION
     Dosage: 200 MILLIGRAM
     Route: 048
     Dates: start: 20121109
  15. DOCUSATE SODIUM [Concomitant]
     Dosage: 100 MILLIGRAM
     Route: 048
     Dates: start: 20130304
  16. SENNOSIDES [Concomitant]
     Indication: PRODUCT USED FOR UNKNOWN INDICATION
     Dosage: 2 TABLET
     Route: 048
     Dates: start: 20121109
  17. SENNOSIDES [Concomitant]
     Dosage: 100 MILLIGRAM
     Route: 048
     Dates: start: 20130304
  18. PROCHLORPERAZINE MALEATE [Concomitant]
     Indication: PRODUCT USED FOR UNKNOWN INDICATION
     Dosage: 20 MILLIGRAM
     Route: 048
     Dates: start: 20121109
  19. PROCHLORPERAZINE MALEATE [Concomitant]
     Dosage: 100 MILLIGRAM
     Route: 048
     Dates: start: 20130304
  20. LORAZEPAM [Concomitant]
     Indication: PRODUCT USED FOR UNKNOWN INDICATION
     Dosage: .5 MILLIGRAM
     Route: 048
     Dates: start: 20121109
  21. LORAZEPAM [Concomitant]
     Dosage: 100 MILLIGRAM
     Route: 048
     Dates: start: 20130304
  22. ONDANSETRON HCL [Concomitant]
     Indication: PRODUCT USED FOR UNKNOWN INDICATION
     Dosage: 24 MILLIGRAM
     Route: 055
     Dates: start: 20121113
  23. AZITHROMYCIN [Concomitant]
     Indication: PRODUCT USED FOR UNKNOWN INDICATION
     Route: 055
     Dates: start: 20120104
  24. MORPHINE [Concomitant]
     Indication: PAIN
     Dosage: 45 MILLIGRAM
     Route: 048
     Dates: start: 20120120
  25. MORPHINE [Concomitant]
     Dosage: 45 MILLIGRAM
     Route: 048
     Dates: start: 20120224
  26. WARFARIN [Concomitant]
     Indication: PRODUCT USED FOR UNKNOWN INDICATION
     Dosage: 5 MILLIGRAM
     Route: 048
     Dates: start: 20120131

REACTIONS (1)
  - Plasma cell myeloma [Fatal]
